FAERS Safety Report 5070177-6 (Version None)
Quarter: 2006Q3

REPORT INFORMATION
  Report Type: 
  Country: None (occurrence: None)
  Receive Date: 20060714
  Receipt Date: 20060411
  Transmission Date: 20061208
  Serious: No
  Sender: FDA-Public Use
  Company Number: 2006SP001643

PATIENT
  Age: 54 Year
  Sex: Male
  Weight: 83.9154 kg

DRUGS (6)
  1. LUNESTA [Suspect]
     Indication: INSOMNIA
     Dosage: 3 MG;HS;ORAL
     Route: 048
     Dates: start: 20060301, end: 20060401
  2. TRICOR [Concomitant]
  3. METHADONE HCL [Concomitant]
  4. CYMBALTA [Concomitant]
  5. LYRICA [Concomitant]
  6. TEMAZEPAM [Concomitant]

REACTIONS (1)
  - DYSGEUSIA [None]
